FAERS Safety Report 13464076 (Version 1)
Quarter: 2017Q2

REPORT INFORMATION
  Report Type: Spontaneous
  Country: US (occurrence: US)
  Receive Date: 20170420
  Receipt Date: 20170420
  Transmission Date: 20170830
  Serious: Yes (Other)
  Sender: FDA-Public Use
  Company Number: US-ROCHE-662541

PATIENT
  Age: 16 Year
  Sex: Female
  Weight: 83.9 kg

DRUGS (2)
  1. ACCUTANE [Suspect]
     Active Substance: ISOTRETINOIN
     Indication: ACNE
     Route: 065
     Dates: start: 19850218, end: 19850718
  2. ACCUTANE [Suspect]
     Active Substance: ISOTRETINOIN
     Route: 065
     Dates: start: 19921020, end: 19921224

REACTIONS (9)
  - Lip dry [Unknown]
  - Crohn^s disease [Unknown]
  - Major depression [Unknown]
  - Inflammatory bowel disease [Unknown]
  - Eye irritation [Unknown]
  - Oral herpes [Unknown]
  - Dry skin [Unknown]
  - Dermatitis contact [Unknown]
  - Impetigo [Unknown]

NARRATIVE: CASE EVENT DATE: 19850325
